FAERS Safety Report 21232173 (Version 1)
Quarter: 2022Q3

REPORT INFORMATION
  Report Type: Spontaneous
  Country: TW (occurrence: TW)
  Receive Date: 20220819
  Receipt Date: 20220819
  Transmission Date: 20221026
  Serious: Yes (Other)
  Sender: FDA-Public Use
  Company Number: TW-UNIQUE PHARMACEUTICAL LABORATORIES-20220800021

PATIENT

DRUGS (3)
  1. FLUCONAZOLE [Interacting]
     Active Substance: FLUCONAZOLE
     Indication: Tinea capitis
     Dosage: 300 MILLIGRAM, QD
     Route: 048
  2. BIPERIDEN [Interacting]
     Active Substance: BIPERIDEN
     Indication: Parkinsonism
     Dosage: 4 MILLIGRAM, QD
  3. RISPERIDONE [Concomitant]
     Active Substance: RISPERIDONE
     Indication: Psychotic disorder
     Dosage: 2 MILLIGRAM, QD

REACTIONS (2)
  - Delirium [Recovered/Resolved]
  - Drug interaction [Recovered/Resolved]
